FAERS Safety Report 7503340-2 (Version None)
Quarter: 2011Q2

REPORT INFORMATION
  Report Type: 
  Country: None (occurrence: None)
  Receive Date: 20110525
  Receipt Date: 20110522
  Transmission Date: 20111010
  Serious: No
  Sender: FDA-Public Use
  Company Number: US-PFIZER INC-2011111359

PATIENT
  Sex: Female
  Weight: 53.515 kg

DRUGS (2)
  1. PREMARIN [Suspect]
     Indication: MENOPAUSE
     Dosage: 0.625 MG, DAILY
  2. CHANTIX [Suspect]
     Indication: SMOKING CESSATION THERAPY
     Dosage: 0.5 MG, 1X/DAY
     Route: 048
     Dates: start: 20110520

REACTIONS (3)
  - ANXIETY [None]
  - NAUSEA [None]
  - INSOMNIA [None]
